FAERS Safety Report 7064839-9 (Version None)
Quarter: 2010Q4

REPORT INFORMATION
  Report Type: 
  Country: None (occurrence: None)
  Receive Date: 20101022
  Receipt Date: 20101022
  Transmission Date: 20110411
  Serious: Yes (Other)
  Sender: FDA-Public Use
  Company Number: None

PATIENT
  Age: 64 Year
  Sex: Male
  Weight: 96.6162 kg

DRUGS (2)
  1. RIFAMPIN [Suspect]
     Indication: ARTHROPOD BITE
     Dosage: 1 CAPSULE 2 X DAILY PO
     Route: 048
     Dates: start: 20101008, end: 20101010
  2. RIFAMPIN [Suspect]
     Indication: CELLULITIS
     Dosage: 1 CAPSULE 2 X DAILY PO
     Route: 048
     Dates: start: 20101008, end: 20101010

REACTIONS (7)
  - ABDOMINAL PAIN UPPER [None]
  - DIARRHOEA [None]
  - DIZZINESS [None]
  - DYSPEPSIA [None]
  - DYSPNOEA [None]
  - NAUSEA [None]
  - NERVOUSNESS [None]
